FAERS Safety Report 5903397-6 (Version None)
Quarter: 2008Q3

REPORT INFORMATION
  Report Type: 
  Country: None (occurrence: None)
  Receive Date: 20080930
  Receipt Date: 20080924
  Transmission Date: 20090109
  Serious: Yes (Other)
  Sender: FDA-Public Use
  Company Number: CN-MERCK-0809CHN00031

PATIENT
  Age: 68 Year
  Sex: Male

DRUGS (2)
  1. PROSCAR [Suspect]
     Indication: BENIGN PROSTATIC HYPERPLASIA
     Route: 048
     Dates: start: 20080301, end: 20080920
  2. LECITHIN [Concomitant]
     Indication: HYPERLIPIDAEMIA
     Route: 048
     Dates: start: 20030101

REACTIONS (3)
  - COORDINATION ABNORMAL [None]
  - DIZZINESS [None]
  - LOSS OF CONSCIOUSNESS [None]
